FAERS Safety Report 7524584-X (Version None)
Quarter: 2011Q2

REPORT INFORMATION
  Report Type: 
  Country: None (occurrence: None)
  Receive Date: 20110606
  Receipt Date: 20110524
  Transmission Date: 20111010
  Serious: Yes (Hospitalization)
  Sender: FDA-Public Use
  Company Number: TR-JNJFOC-20110512440

PATIENT
  Age: 62 Year
  Sex: Female

DRUGS (9)
  1. MORPHINE SULFATE [Suspect]
     Route: 048
  2. FENTANYL [Suspect]
     Indication: PAIN
     Route: 062
  3. ACE INHIBITORS [Concomitant]
     Indication: HYPERTENSION
     Route: 065
  4. ACETAMINOPHEN [Concomitant]
     Route: 065
  5. NON STEROIDAL ANTIINFLAMMATORY DRUG [Concomitant]
     Route: 065
  6. FENTANYL CITRATE [Suspect]
     Indication: BREAKTHROUGH PAIN
     Route: 065
  7. MORPHINE SULFATE [Suspect]
     Indication: ILL-DEFINED DISORDER
     Route: 048
  8. METOPROLOL TARTRATE [Concomitant]
     Indication: HYPERTENSION
     Route: 065
  9. PREGABALIN [Concomitant]
     Indication: NEUROPATHY PERIPHERAL
     Route: 065

REACTIONS (15)
  - CONFUSIONAL STATE [None]
  - METASTASES TO CENTRAL NERVOUS SYSTEM [None]
  - MIOSIS [None]
  - RESPIRATORY RATE DECREASED [None]
  - PAIN [None]
  - DEHYDRATION [None]
  - OVERDOSE [None]
  - AGITATION [None]
  - METASTASES TO LIVER [None]
  - DECREASED APPETITE [None]
  - VOMITING [None]
  - HYPOTONIA [None]
  - HYPERCALCAEMIA [None]
  - NAUSEA [None]
  - RENAL FAILURE ACUTE [None]
